FAERS Safety Report 15225373 (Version 8)
Quarter: 2025Q4

REPORT INFORMATION
  Report Type: Spontaneous
  Country: US (occurrence: US)
  Receive Date: 20180801
  Receipt Date: 20251211
  Transmission Date: 20260118
  Serious: Yes (Hospitalization, Other)
  Sender: CIPLA
  Company Number: US-CIPLA LTD.-2018US20356

PATIENT

DRUGS (3)
  1. CITALOPRAM [Suspect]
     Active Substance: CITALOPRAM
     Dosage: UNK, UNKNOWN AMOUNT
     Route: 065
  2. GABAPENTIN [Suspect]
     Active Substance: GABAPENTIN
     Dosage: 178 DF IN TOTAL (53.4 G), 178 TABLETS OF 300 MG
     Route: 048
  3. SULFAMETHOXAZOLE\TRIMETHOPRIM [Suspect]
     Active Substance: SULFAMETHOXAZOLE\TRIMETHOPRIM
     Dosage: UNK
     Route: 065

REACTIONS (4)
  - Respiratory failure [Recovered/Resolved]
  - Dysarthria [Recovered/Resolved]
  - Myoclonus [Recovered/Resolved]
  - Intentional overdose [Unknown]
